FAERS Safety Report 10423150 (Version 1)
Quarter: 2014Q3

REPORT INFORMATION
  Report Type: Spontaneous
  Country: US (occurrence: None)
  Receive Date: 20140722
  Receipt Date: 20140722
  Transmission Date: 20150326
  Serious: No
  Sender: FDA-Public Use
  Company Number: AEGR000423

PATIENT
  Age: 49 Year
  Sex: Male

DRUGS (8)
  1. CITALOPRAM (CITALOPRAM HYDROCHLORIDE) [Concomitant]
  2. LIPITOR [Concomitant]
     Active Substance: ATORVASTATIN CALCIUM
  3. DICLOFENAC (DICLOFENAC) [Concomitant]
     Active Substance: DICLOFENAC SODIUM
  4. JUXTAPID [Suspect]
     Active Substance: LOMITAPIDE MESYLATE
     Indication: PRODUCT USED FOR UNKNOWN INDICATION
     Route: 048
     Dates: start: 20130711
  5. ZETIA [Concomitant]
     Active Substance: EZETIMIBE
  6. NIASPAN (NICOTINIC ACID) [Concomitant]
  7. VITAMIN E [Suspect]
     Active Substance: .ALPHA.-TOCOPHEROL
  8. HYDROCHLOROTHIAZIDE (HYDROCHLOROTHIAZIDE) [Concomitant]
     Active Substance: HYDROCHLOROTHIAZIDE

REACTIONS (2)
  - Diarrhoea [None]
  - Product used for unknown indication [None]
